FAERS Safety Report 8817166 (Version 1)
Quarter: 2012Q4

REPORT INFORMATION
  Report Type: Spontaneous
  Country: GB (occurrence: None)
  Receive Date: 20121002
  Receipt Date: 20121002
  Transmission Date: 20130627
  Serious: Yes (Life-Threatening, Other)
  Sender: FDA-Public Use
  Company Number: AUR-APL-2012-04172

PATIENT
  Age: 45 Year
  Sex: Male

DRUGS (4)
  1. MIRTAZAPINE [Suspect]
     Route: 048
  2. DIHYDROCODEINE [Suspect]
     Route: 048
  3. PREGABALIN [Suspect]
     Route: 048
  4. LORATADINE [Suspect]
     Route: 048

REACTIONS (6)
  - Overdose [None]
  - Hyperpyrexia [None]
  - Myoclonus [None]
  - Blood creatine phosphokinase increased [None]
  - Chromaturia [None]
  - Somnolence [None]
